FAERS Safety Report 5431760-9 (Version None)
Quarter: 2007Q3

REPORT INFORMATION
  Report Type: 
  Country: None (occurrence: None)
  Receive Date: 20070830
  Receipt Date: 20070820
  Transmission Date: 20080115
  Serious: Yes (Other)
  Sender: FDA-Public Use
  Company Number: US-SHR-US-2007-022052

PATIENT
  Age: 55 Year
  Sex: Female
  Weight: 59 kg

DRUGS (2)
  1. BETASERON [Suspect]
     Route: 058
     Dates: end: 20070101
  2. AVONEX [Concomitant]
     Dates: start: 20070301

REACTIONS (4)
  - BREAST CANCER [None]
  - CYSTITIS [None]
  - ENTEROCOLITIS INFECTIOUS [None]
  - FALL [None]
